FAERS Safety Report 6345117-X (Version None)
Quarter: 2009Q3

REPORT INFORMATION
  Report Type: 
  Country: None (occurrence: None)
  Receive Date: 20090909
  Receipt Date: 20070312
  Transmission Date: 20100115
  Serious: Yes (Disabling, Other)
  Sender: FDA-Public Use
  Company Number: US-ASTRAZENECA-2006UW04347

PATIENT
  Age: 13982 Day
  Sex: Female
  Weight: 106.1 kg

DRUGS (6)
  1. SEROQUEL [Suspect]
     Dosage: 100-200 MG
     Route: 048
     Dates: start: 20031007
  2. NAPROSYN [Concomitant]
     Route: 048
     Dates: start: 20031007
  3. SYNTHROID [Concomitant]
     Dosage: 0.175- 0.2 MCG
     Route: 048
     Dates: start: 20031007
  4. ZOLOFT [Concomitant]
     Dosage: 50-150 MG
     Route: 048
     Dates: start: 20031007
  5. LIPITOR [Concomitant]
     Route: 048
     Dates: start: 20041122
  6. DEPAKOTE [Concomitant]
     Dosage: 250-1500 MG
     Route: 048
     Dates: start: 20031007

REACTIONS (3)
  - DIABETES MELLITUS [None]
  - DIABETIC NEUROPATHY [None]
  - TYPE 2 DIABETES MELLITUS [None]
